FAERS Safety Report 5878421-X (Version None)
Quarter: 2008Q3

REPORT INFORMATION
  Report Type: 
  Country: None (occurrence: None)
  Receive Date: 20080909
  Receipt Date: 20080825
  Transmission Date: 20090109
  Serious: Yes (Other)
  Sender: FDA-Public Use
  Company Number: 1000000782

PATIENT
  Sex: Female

DRUGS (5)
  1. ESCITALOPRAM (ESCITALOPRAM OXALATE) (10MG) [Suspect]
     Indication: DEPRESSION
     Dosage: 10 MG (10 MG, 1 IN 1 D), ORAL, 10 MG (10 MG, 1 IN 1 D), ORAL
     Route: 048
     Dates: start: 20080101, end: 20080101
  2. ESCITALOPRAM (ESCITALOPRAM OXALATE) (10MG) [Suspect]
     Indication: DEPRESSION
     Dosage: 10 MG (10 MG, 1 IN 1 D), ORAL, 10 MG (10 MG, 1 IN 1 D), ORAL
     Route: 048
     Dates: start: 20080213, end: 20080101
  3. ESCITALOPRAM [Suspect]
     Indication: DEPRESSION
     Dosage: 20 MG (20 MG, 1 IN 1 D), ORAL
     Route: 048
     Dates: start: 20080101, end: 20080101
  4. ESCITALOPRAM (ESCITALOPRAM OXALATE) (5 MG, TABLETS) [Suspect]
     Indication: DEPRESSION
     Dosage: 5 MG (5 MG, 1 IN 1 D), ORAL
     Route: 048
     Dates: start: 20080101
  5. BROMAZEPAM [Concomitant]

REACTIONS (1)
  - RHEUMATOID ARTHRITIS [None]
